FAERS Safety Report 11161030 (Version 1)
Quarter: 2015Q2

REPORT INFORMATION
  Report Type: Spontaneous
  Country: US (occurrence: US)
  Receive Date: 20150604
  Receipt Date: 20150604
  Transmission Date: 20150821
  Serious: No
  Sender: FDA-Public Use
  Company Number: US-SA-2014SA076150

PATIENT
  Age: 74 Year
  Sex: Female
  Weight: 131 kg

DRUGS (4)
  1. SOLOSTAR [Concomitant]
     Active Substance: DEVICE
     Dates: start: 20140416
  2. HYDROCODONE [Concomitant]
     Active Substance: HYDROCODONE
  3. LANTUS SOLOSTAR [Suspect]
     Active Substance: INSULIN GLARGINE
     Indication: DIABETES MELLITUS
     Dosage: DOSE:63 UNIT(S)
     Route: 065
     Dates: start: 20140416
  4. CODEINE [Concomitant]
     Active Substance: CODEINE

REACTIONS (1)
  - Injection site pain [Unknown]

NARRATIVE: CASE EVENT DATE: 20140528
